FAERS Safety Report 10015989 (Version 2)
Quarter: 2014Q2

REPORT INFORMATION
  Report Type: Spontaneous
  Country: IT (occurrence: IT)
  Receive Date: 20140317
  Receipt Date: 20140416
  Transmission Date: 20141212
  Serious: Yes (Hospitalization, Other)
  Sender: FDA-Public Use
  Company Number: IT-BRISTOL-MYERS SQUIBB COMPANY-20423000

PATIENT
  Age: 67 Year
  Sex: Male

DRUGS (4)
  1. COUMADIN TABS 5 MG [Suspect]
     Indication: ATRIAL FIBRILLATION
     Route: 048
     Dates: start: 20090813, end: 20140226
  2. CORDARONE [Concomitant]
  3. CONGESCOR [Concomitant]
  4. QUARK [Concomitant]

REACTIONS (8)
  - Subdural haematoma [Recovered/Resolved]
  - Headache [Recovered/Resolved]
  - Vertigo [Recovered/Resolved]
  - International normalised ratio increased [Recovered/Resolved]
  - Pneumonia [Unknown]
  - Inguinal hernia [Unknown]
  - Meningitis [Unknown]
  - Ophthalmic herpes simplex [Unknown]
